FAERS Safety Report 5324974-X (Version None)
Quarter: 2007Q2

REPORT INFORMATION
  Report Type: 
  Country: None (occurrence: None)
  Receive Date: 20070509
  Receipt Date: 20070427
  Transmission Date: 20071010
  Serious: Yes (Hospitalization, Other)
  Sender: FDA-Public Use
  Company Number: 163-21880-07040135

PATIENT
  Age: 78 Year
  Sex: Male

DRUGS (9)
  1. REVLIMID [Suspect]
     Indication: MULTIPLE MYELOMA
     Dosage: 20 MG, 2 IN 1 D, ORAL
     Route: 048
     Dates: start: 20070317, end: 20070319
  2. PAMIDRONATE DISODIUM [Suspect]
     Indication: DRUG USE FOR UNKNOWN INDICATION
  3. ALLOPURINOL [Concomitant]
  4. DECADRON [Concomitant]
  5. PRILOSEC [Concomitant]
  6. MULTIVITAMIN [Concomitant]
  7. ASPIRIN TAB [Concomitant]
  8. PERCOCET [Concomitant]
  9. FENTANYL (FENTANYL) (POULTICE OR PATCH) [Concomitant]

REACTIONS (8)
  - BLOOD URIC ACID INCREASED [None]
  - DEHYDRATION [None]
  - HAEMODIALYSIS [None]
  - MULTIPLE MYELOMA [None]
  - RENAL DISORDER [None]
  - RENAL FAILURE ACUTE [None]
  - RENAL FAILURE CHRONIC [None]
  - URATE NEPHROPATHY [None]
